FAERS Safety Report 25223351 (Version 4)
Quarter: 2025Q3

REPORT INFORMATION
  Report Type: Report from Study
  Country: US (occurrence: US)
  Receive Date: 20250422
  Receipt Date: 20250915
  Transmission Date: 20251020
  Serious: No
  Sender: SUNOVION
  Company Number: US-SUMITOMO PHARMA SWITZERLAND GMBH-2025SPA003737

PATIENT
  Age: 83 Year
  Sex: Male

DRUGS (12)
  1. ORGOVYX [Suspect]
     Active Substance: RELUGOLIX
     Indication: Prostate cancer
     Dosage: 360 MG, SINGLE (ON DAY 1)
     Route: 048
     Dates: start: 20250217, end: 20250217
  2. ORGOVYX [Suspect]
     Active Substance: RELUGOLIX
     Dosage: 120 MG, QD
     Route: 048
     Dates: start: 20250218
  3. PREDNISONE [Suspect]
     Active Substance: PREDNISONE
     Indication: Product used for unknown indication
  4. ABIRATERONE [Concomitant]
     Active Substance: ABIRATERONE
  5. ATORVASTATIN [Concomitant]
     Active Substance: ATORVASTATIN
  6. COLCHICINE [Concomitant]
     Active Substance: COLCHICINE
  7. CYCLOBENZAPRINE HYDROCHLORIDE [Concomitant]
     Active Substance: CYCLOBENZAPRINE HYDROCHLORIDE
  8. ENALAPRIL MALEATE [Concomitant]
     Active Substance: ENALAPRIL MALEATE
  9. VITAMINS [Concomitant]
     Active Substance: VITAMINS
  10. OXYBUTYNIN [Concomitant]
     Active Substance: OXYBUTYNIN
  11. VITAMIN D [Concomitant]
     Active Substance: VITAMIN D NOS
  12. TADALAFIL [Concomitant]
     Active Substance: TADALAFIL

REACTIONS (5)
  - Dry mouth [Unknown]
  - COVID-19 [Unknown]
  - Nasopharyngitis [Unknown]
  - Fatigue [Unknown]
  - Product dose omission in error [Recovered/Resolved]

NARRATIVE: CASE EVENT DATE: 20250420
